FAERS Safety Report 10539088 (Version 1)
Quarter: 2014Q4

REPORT INFORMATION
  Report Type: Spontaneous
  Country: NO (occurrence: NO)
  Receive Date: 20141023
  Receipt Date: 20141023
  Transmission Date: 20150529
  Serious: Yes (Hospitalization)
  Sender: FDA-Public Use
  Company Number: NO-WATSON-2014-22403

PATIENT
  Age: 63 Year
  Sex: Male

DRUGS (5)
  1. PARACET                            /00020001/ [Concomitant]
     Active Substance: ACETAMINOPHEN
     Indication: PRODUCT USED FOR UNKNOWN INDICATION
     Dosage: 1 G, QID
     Route: 048
  2. EPINEPHRINE. [Suspect]
     Active Substance: EPINEPHRINE
     Indication: ANALGESIC THERAPY
     Dosage: 12-14 MCG/HR, UNKNOWN
     Route: 008
     Dates: start: 20140116, end: 20140118
  3. KLEXANE [Concomitant]
     Active Substance: ENOXAPARIN
     Indication: PRODUCT USED FOR UNKNOWN INDICATION
     Dosage: 40 MG, DAILY
     Route: 058
  4. BUPIVACAINE (UNKNOWN) [Suspect]
     Active Substance: BUPIVACAINE
     Indication: ANALGESIC THERAPY
     Dosage: 6-7 MG/HOUR, UNKNOWN
     Route: 008
     Dates: start: 20140116, end: 20140118
  5. FENTANYL (UNKNOWN) [Suspect]
     Active Substance: FENTANYL
     Indication: ANALGESIC THERAPY
     Dosage: 12-14 MCG/HR, UNKNOWN
     Route: 008
     Dates: start: 20140116, end: 20140118

REACTIONS (1)
  - Sinus arrest [Recovering/Resolving]

NARRATIVE: CASE EVENT DATE: 20140117
